FAERS Safety Report 6495559-7 (Version None)
Quarter: 2009Q4

REPORT INFORMATION
  Report Type: 
  Country: None (occurrence: None)
  Receive Date: 20091214
  Receipt Date: 20090713
  Transmission Date: 20100525
  Serious: No
  Sender: FDA-Public Use
  Company Number: US-BRISTOL-MYERS SQUIBB COMPANY-14700538

PATIENT
  Age: 47 Year
  Sex: Female
  Weight: 66 kg

DRUGS (5)
  1. ABILIFY [Suspect]
     Indication: MOOD ALTERED
     Dates: start: 20090601, end: 20090601
  2. ABILIFY [Suspect]
     Indication: DEPRESSION
     Dates: start: 20090601, end: 20090601
  3. LUNESTA [Suspect]
     Indication: INSOMNIA
     Dosage: HS
     Route: 048
     Dates: start: 20090601
  4. LAMICTAL [Concomitant]
  5. SYNTHROID [Concomitant]

REACTIONS (2)
  - ARTHRALGIA [None]
  - MYALGIA [None]
